FAERS Safety Report 21505690 (Version 2)
Quarter: 2022Q4

REPORT INFORMATION
  Report Type: Spontaneous
  Country: US (occurrence: US)
  Receive Date: 20221026
  Receipt Date: 20221029
  Transmission Date: 20230112
  Serious: No
  Sender: FDA-Public Use
  Company Number: US-UNITED THERAPEUTICS-UNT-2022-024844

PATIENT
  Age: 65 Year
  Sex: Male
  Weight: 99.773 kg

DRUGS (6)
  1. REMODULIN [Suspect]
     Active Substance: TREPROSTINIL
     Indication: Pulmonary arterial hypertension
     Dosage: UNK, CONTINUING
     Route: 058
     Dates: start: 20221011
  2. REMODULIN [Suspect]
     Active Substance: TREPROSTINIL
     Dosage: 0.010 ?G/KG, (PREFILLED WITH 2.6ML PER CASSETTE AT PUMP RATE 24 MCL/HOUR), CONTINUING
     Route: 058
     Dates: start: 202210
  3. REMODULIN [Suspect]
     Active Substance: TREPROSTINIL
     Dosage: 0.014 ?G/KG, (PREFILLED WITH 2.6ML CASSETTE AT PUMP RATE OF 24 MCL/HOUR), CONTINUING
     Route: 058
     Dates: start: 202210
  4. REMODULIN [Suspect]
     Active Substance: TREPROSTINIL
     Dosage: 0.014 ?G/KG, (PREFILLED WITH 3ML PER CASSETTE AT PUMP RATE OF 34 MCL/HOUR), CONTINUING
     Route: 058
     Dates: start: 202210
  5. XARELTO [Concomitant]
     Active Substance: RIVAROXABAN
     Indication: Product used for unknown indication
     Dosage: UNK
     Route: 065
  6. TADALAFIL [Concomitant]
     Active Substance: TADALAFIL
     Indication: Product used for unknown indication
     Dosage: UNK
     Route: 065

REACTIONS (13)
  - Device failure [Unknown]
  - Device power source issue [Unknown]
  - Product quality issue [Unknown]
  - Device use error [Unknown]
  - Headache [Recovering/Resolving]
  - Infusion site pain [Recovering/Resolving]
  - Device power source issue [Unknown]
  - Device failure [Unknown]
  - Device leakage [Unknown]
  - Device leakage [Unknown]
  - Device power source issue [Unknown]
  - Device power source issue [Unknown]
  - Memory impairment [Unknown]

NARRATIVE: CASE EVENT DATE: 20221001
